FAERS Safety Report 18373488 (Version 1)
Quarter: 2020Q4

REPORT INFORMATION
  Report Type: Spontaneous
  Country: CN (occurrence: CN)
  Receive Date: 20201012
  Receipt Date: 20201012
  Transmission Date: 20210114
  Serious: Yes (Hospitalization)
  Sender: FDA-Public Use
  Company Number: CN-PFIZER INC-2020392810

PATIENT
  Age: 4 Year
  Sex: Male
  Weight: 15.5 kg

DRUGS (1)
  1. ZITHROMAX [Suspect]
     Active Substance: AZITHROMYCIN DIHYDRATE
     Indication: INFECTION
     Dosage: 0.2 G, 1X/DAY
     Route: 048
     Dates: start: 20201004, end: 20201004

REACTIONS (3)
  - Abdominal pain [Recovering/Resolving]
  - Pneumonia [Unknown]
  - Diarrhoea [Recovering/Resolving]

NARRATIVE: CASE EVENT DATE: 20201004
